FAERS Safety Report 4827156-0 (Version None)
Quarter: 2005Q4

REPORT INFORMATION
  Report Type: 
  Country: None (occurrence: None)
  Receive Date: 20051014
  Receipt Date: 20050623
  Transmission Date: 20060501
  Serious: No
  Sender: FDA-Public Use
  Company Number: 2005SP001574

PATIENT
  Age: 27 Year
  Sex: Male

DRUGS (4)
  1. LUNESTA [Suspect]
     Indication: INSOMNIA
     Dosage: 3 MG; ORAL
     Route: 048
     Dates: start: 20050601
  2. XANAX [Concomitant]
  3. THYROID THERAPY [Concomitant]
  4. LEXAPRO [Concomitant]

REACTIONS (7)
  - AGITATION [None]
  - DRUG INEFFECTIVE [None]
  - DYSGEUSIA [None]
  - INSOMNIA [None]
  - NIGHTMARE [None]
  - POLLAKIURIA [None]
  - RESTLESSNESS [None]
